FAERS Safety Report 5805050-6 (Version None)
Quarter: 2008Q3

REPORT INFORMATION
  Report Type: 
  Country: None (occurrence: None)
  Receive Date: 20080709
  Receipt Date: 20080630
  Transmission Date: 20090109
  Serious: Yes (Life-Threatening, Hospitalization)
  Sender: FDA-Public Use
  Company Number: GB-PFIZER INC-2008055024

PATIENT
  Age: 66 Year
  Sex: Male

DRUGS (16)
  1. ATORVASTATIN CALCIUM [Suspect]
  2. DICLOFENAC SODIUM [Suspect]
     Indication: GOUT
     Dates: start: 20080605, end: 20080607
  3. EZETIMIBE [Suspect]
  4. ALLOPURINOL [Concomitant]
  5. ACETYLSALICYLIC ACID SRT [Concomitant]
  6. ATENOLOL [Concomitant]
  7. DIHYDROCODEINE [Concomitant]
  8. DOXAZOSIN MESYLATE [Concomitant]
  9. FERROUS SULFATE TAB [Concomitant]
  10. FUROSEMIDE [Concomitant]
  11. LANSOPRAZOLE [Concomitant]
  12. METFORMIN HCL [Concomitant]
  13. ACETAMINOPHEN [Concomitant]
  14. PERINDOPRIL ERBUMINE [Concomitant]
  15. PREGABALIN [Concomitant]
  16. TADALAFIL [Concomitant]

REACTIONS (7)
  - BLOOD CREATINE PHOSPHOKINASE INCREASED [None]
  - BLOOD POTASSIUM INCREASED [None]
  - MALAISE [None]
  - METABOLIC ACIDOSIS [None]
  - RENAL FAILURE ACUTE [None]
  - RHABDOMYOLYSIS [None]
  - SYNCOPE [None]
